FAERS Safety Report 10011419 (Version 3)
Quarter: 2014Q2

REPORT INFORMATION
  Report Type: Report from Study
  Country: CN (occurrence: CN)
  Receive Date: 20140314
  Receipt Date: 20140402
  Transmission Date: 20141212
  Serious: Yes (Hospitalization)
  Sender: FDA-Public Use
  Company Number: CN-BAYER-2014-036510

PATIENT
  Age: 40 Year
  Sex: Male

DRUGS (2)
  1. NEXAVAR [Suspect]
     Indication: HEPATIC CANCER STAGE IV
     Dosage: 400 MG, BID
     Route: 048
     Dates: start: 20140111, end: 20140226
  2. NEXAVAR [Suspect]
     Indication: METASTASES TO BONE
     Dosage: 400 MG, BID
     Route: 048
     Dates: start: 20140302, end: 20140307

REACTIONS (2)
  - Asthenia [Recovering/Resolving]
  - Hypoaesthesia [Recovering/Resolving]
